FAERS Safety Report 18269264 (Version 1)
Quarter: 2020Q3

REPORT INFORMATION
  Report Type: Spontaneous
  Country: FR (occurrence: FR)
  Receive Date: 20200915
  Receipt Date: 20200915
  Transmission Date: 20201103
  Serious: Yes (Other)
  Sender: FDA-Public Use
  Company Number: FR-JAZZ-2020-FR-000840

PATIENT
  Age: 27 Year
  Sex: Male

DRUGS (1)
  1. KIDROLASE [Suspect]
     Active Substance: ASPARAGINASE
     Indication: ACUTE LYMPHOCYTIC LEUKAEMIA
     Dosage: 2500 IU/M2, UNK
     Route: 065
     Dates: start: 20191226, end: 202001

REACTIONS (2)
  - Drug ineffective [Recovering/Resolving]
  - Drug specific antibody present [Recovering/Resolving]

NARRATIVE: CASE EVENT DATE: 20200107
